FAERS Safety Report 6555772-7 (Version None)
Quarter: 2010Q1

REPORT INFORMATION
  Report Type: 
  Country: None (occurrence: None)
  Receive Date: 20100128
  Receipt Date: 20100117
  Transmission Date: 20100710
  Serious: Yes (Hospitalization)
  Sender: FDA-Public Use
  Company Number: JP-TEVA-222232ISR

PATIENT
  Sex: Female
  Weight: 52.9 kg

DRUGS (14)
  1. CISPLATIN [Suspect]
     Indication: METASTATIC GASTRIC CANCER
     Route: 042
     Dates: start: 20091127
  2. CISPLATIN [Concomitant]
  3. TS-1 [Suspect]
     Indication: METASTATIC GASTRIC CANCER
     Route: 048
     Dates: start: 20091127
  4. SUNITINIB MALATE [Suspect]
     Indication: METASTATIC GASTRIC CANCER
     Route: 048
     Dates: start: 20091126
  5. LANSOPRAZOLE [Concomitant]
  6. FERROUS SULFATE TAB [Concomitant]
  7. MAGNESIUM OXIDE [Concomitant]
  8. YEAST DRIED [Concomitant]
  9. SENNOSIDE A+B CALCIUM [Concomitant]
  10. FUROSEMIDE [Concomitant]
  11. LACTEC (CALCIUM CHLORIDE ANHYDROUS, POTASSIUM CHLORIDE, SODIUM CHLORID [Concomitant]
  12. DEXAMETHASONE [Concomitant]
  13. GRANISETRON [Concomitant]
  14. METOCLOPRAMIDE [Concomitant]

REACTIONS (1)
  - BRADYCARDIA [None]
